FAERS Safety Report 4922169-2 (Version None)
Quarter: 2006Q1

REPORT INFORMATION
  Report Type: 
  Country: None (occurrence: None)
  Receive Date: 20060224
  Receipt Date: 20051001
  Transmission Date: 20060701
  Serious: No
  Sender: FDA-Public Use
  Company Number: PR-MERCK-0510USA01796

PATIENT
  Sex: Female

DRUGS (1)
  1. VIOXX [Suspect]
     Indication: PAIN
     Route: 048
     Dates: start: 20010602

REACTIONS (4)
  - HEADACHE [None]
  - IIIRD NERVE DISORDER [None]
  - MENTAL DISORDER [None]
  - VEIN DISORDER [None]
